FAERS Safety Report 14364789 (Version 1)
Quarter: 2018Q1

REPORT INFORMATION
  Report Type: Spontaneous
  Country: US (occurrence: US)
  Receive Date: 20180106
  Receipt Date: 20180106
  Transmission Date: 20180509
  Serious: No
  Sender: FDA-Public Use
  Company Number: None

PATIENT
  Age: 45 Year
  Sex: Female
  Weight: 56.25 kg

DRUGS (3)
  1. VITAMINS [Concomitant]
     Active Substance: VITAMINS
  2. DUEXIS [Suspect]
     Active Substance: FAMOTIDINE\IBUPROFEN
     Indication: ARTHRALGIA
     Route: 048
     Dates: start: 20171204, end: 20180103
  3. NAPROXIN [Concomitant]
     Active Substance: NAPROXEN

REACTIONS (5)
  - Vaginal haemorrhage [None]
  - Rash [None]
  - Urticaria [None]
  - Depression [None]
  - Mental impairment [None]

NARRATIVE: CASE EVENT DATE: 20180103
